FAERS Safety Report 13932533 (Version 2)
Quarter: 2017Q3

REPORT INFORMATION
  Report Type: Spontaneous
  Country: US (occurrence: US)
  Receive Date: 20170904
  Receipt Date: 20170906
  Transmission Date: 20171127
  Serious: Yes (Death, Other)
  Sender: FDA-Public Use
  Company Number: US-IPCA LABORATORIES LIMITED-IPC-2017-US-002881

PATIENT
  Age: 17 Year
  Sex: Female

DRUGS (1)
  1. METOPROLOL. [Suspect]
     Active Substance: METOPROLOL
     Indication: PRODUCT USED FOR UNKNOWN INDICATION
     Dosage: UNK

REACTIONS (6)
  - Respiratory depression [Unknown]
  - Bradycardia [Unknown]
  - Depressed level of consciousness [Unknown]
  - Exposure to toxic agent [Fatal]
  - Hypotension [Unknown]
  - Coma [Unknown]
